FAERS Safety Report 4477294-X (Version None)
Quarter: 2004Q4

REPORT INFORMATION
  Report Type: 
  Country: None (occurrence: None)
  Receive Date: 20041013
  Receipt Date: 20041004
  Transmission Date: 20050328
  Serious: Yes (Life-Threatening, Other)
  Sender: FDA-Public Use
  Company Number: HQWYE548505OCT04

PATIENT
  Sex: Male

DRUGS (1)
  1. ROBAXISAL (METHOCARBAMOL/ASPIRIN, TABLET) [Suspect]
     Indication: BACK PAIN
     Dosage: 1 TAB
     Route: 048
     Dates: start: 20041002, end: 20041002

REACTIONS (3)
  - HYPERSENSITIVITY [None]
  - RESPIRATORY ARREST [None]
  - SWELLING FACE [None]
